FAERS Safety Report 7806357-3 (Version None)
Quarter: 2011Q4

REPORT INFORMATION
  Report Type: 
  Country: None (occurrence: None)
  Receive Date: 20111011
  Receipt Date: 20110928
  Transmission Date: 20120403
  Serious: Yes (Other)
  Sender: FDA-Public Use
  Company Number: CA-ELI_LILLY_AND_COMPANY-CA201109007963

PATIENT
  Sex: Male

DRUGS (13)
  1. ZYPREXA [Suspect]
     Indication: SCHIZOAFFECTIVE DISORDER
     Dosage: 10 MG, EACH EVENING
     Dates: start: 19980326
  2. LITHIUM [Concomitant]
  3. SEROQUEL [Concomitant]
  4. RISPERDAL [Concomitant]
  5. ZYPREXA [Suspect]
     Dosage: 25 MG, QD
  6. KEMADRIN [Concomitant]
  7. CLONAZEPAM [Concomitant]
  8. EFFEXOR [Concomitant]
  9. LAMOTRIGINE [Concomitant]
  10. ZYPREXA [Suspect]
     Dosage: 20 MG, EACH EVENING
  11. ZYPREXA [Suspect]
     Dosage: 7.5 MG, UNK
  12. ZYPREXA [Suspect]
     Dosage: 15 MG, QD
  13. DALMANE [Concomitant]

REACTIONS (6)
  - CEREBROVASCULAR ACCIDENT [None]
  - HYPERTENSION [None]
  - DIABETES MELLITUS [None]
  - URINARY TRACT INFECTION [None]
  - HYPERLIPIDAEMIA [None]
  - OVERDOSE [None]
